FAERS Safety Report 13261074 (Version 1)
Quarter: 2017Q1

REPORT INFORMATION
  Report Type: Spontaneous
  Country: GB (occurrence: GB)
  Receive Date: 20170222
  Receipt Date: 20170222
  Transmission Date: 20170428
  Serious: Yes (Other)
  Sender: FDA-Public Use
  Company Number: GB-TEVA-742384ACC

PATIENT
  Age: 37 Year
  Sex: Male

DRUGS (1)
  1. FEXOFENADINE [Suspect]
     Active Substance: FEXOFENADINE\FEXOFENADINE HYDROCHLORIDE
     Indication: IDIOPATHIC URTICARIA
     Dosage: 360 MILLIGRAM DAILY;
     Route: 048
     Dates: start: 20150101, end: 20170104

REACTIONS (1)
  - Abnormal weight gain [Not Recovered/Not Resolved]
